FAERS Safety Report 5227226-1 (Version None)
Quarter: 2007Q1

REPORT INFORMATION
  Report Type: 
  Country: None (occurrence: None)
  Receive Date: 20070202
  Receipt Date: 20070125
  Transmission Date: 20070707
  Serious: Yes (Death, Congenital Anomaly)
  Sender: FDA-Public Use
  Company Number: FR-GLAXOSMITHKLINE-B0456407A

PATIENT
  Sex: Female

DRUGS (3)
  1. PAROXETINE HCL [Suspect]
     Dates: end: 20060601
  2. XANAX [Concomitant]
     Dosage: 1TAB PER DAY
  3. DIET [Concomitant]
     Indication: GESTATIONAL DIABETES

REACTIONS (5)
  - ABORTION INDUCED [None]
  - CEREBRAL ATROPHY [None]
  - CONGENITAL CENTRAL NERVOUS SYSTEM ANOMALY [None]
  - DRUG EXPOSURE DURING PREGNANCY [None]
  - NERVOUS SYSTEM DISORDER [None]
